FAERS Safety Report 6310978-7 (Version None)
Quarter: 2009Q3

REPORT INFORMATION
  Report Type: 
  Country: None (occurrence: None)
  Receive Date: 20090817
  Receipt Date: 20090813
  Transmission Date: 20100115
  Serious: Yes (Death)
  Sender: FDA-Public Use
  Company Number: US-BIOGENIDEC-2009BI025340

PATIENT
  Age: 36 Year
  Sex: Male

DRUGS (5)
  1. TYSABRI [Suspect]
     Indication: MULTIPLE SCLEROSIS
     Route: 042
     Dates: start: 20080110, end: 20090702
  2. FENTANYL [Concomitant]
  3. HYDROCODONE [Concomitant]
  4. ALPRAZOLAM [Concomitant]
  5. CARBATROL [Concomitant]

REACTIONS (1)
  - DEATH [None]
